FAERS Safety Report 20538723 (Version 2)
Quarter: 2022Q1

REPORT INFORMATION
  Report Type: Spontaneous
  Country: IN (occurrence: IN)
  Receive Date: 20220302
  Receipt Date: 20220308
  Transmission Date: 20220423
  Serious: Yes (Other)
  Sender: FDA-Public Use
  Company Number: IN-MLMSERVICE-20220217-3373555-1

PATIENT
  Age: 18 Year
  Sex: Female

DRUGS (2)
  1. METHOTREXATE SODIUM [Suspect]
     Active Substance: METHOTREXATE SODIUM
     Indication: Ovarian germ cell cancer stage III
     Dosage: WEEKLY BASIS
  2. VINBLASTINE [Suspect]
     Active Substance: VINBLASTINE
     Indication: Ovarian germ cell cancer stage III
     Dosage: WEEKLY BASIS

REACTIONS (4)
  - Drug intolerance [Unknown]
  - Neutropenia [Unknown]
  - Mouth ulceration [Unknown]
  - Diarrhoea [Unknown]
